FAERS Safety Report 17487892 (Version 2)
Quarter: 2020Q1

REPORT INFORMATION
  Report Type: Spontaneous
  Country: AU (occurrence: AU)
  Receive Date: 20200303
  Receipt Date: 20200316
  Transmission Date: 20200409
  Serious: Yes (Hospitalization)
  Sender: FDA-Public Use
  Company Number: AU-CELGENEUS-AUS-20200208541

PATIENT
  Age: 35 Year
  Sex: Male

DRUGS (22)
  1. THALIDOMIDE [Suspect]
     Active Substance: THALIDOMIDE
     Dosage: 400 MILLIGRAM
     Route: 048
     Dates: start: 20200223
  2. RIFAMPICIN [Concomitant]
     Active Substance: RIFAMPIN
     Dosage: 600 MILLIGRAM
     Route: 065
     Dates: end: 20200306
  3. MOXIFLOXACIN. [Concomitant]
     Active Substance: MOXIFLOXACIN
     Indication: LEPROSY
     Dosage: 400 MILLIGRAM
     Route: 065
     Dates: start: 20200223, end: 20200304
  4. ENOXAPARIN [Concomitant]
     Active Substance: ENOXAPARIN
     Indication: ANTICOAGULANT THERAPY
     Route: 058
  5. LANTUS [Concomitant]
     Active Substance: INSULIN GLARGINE
     Indication: DIABETES MELLITUS
     Dosage: UNITS
     Route: 065
     Dates: start: 20200228
  6. THALIDOMIDE [Suspect]
     Active Substance: THALIDOMIDE
     Dosage: 300 MILLIGRAM
     Route: 048
     Dates: start: 20200219
  7. DAPSONE. [Concomitant]
     Active Substance: DAPSONE
     Indication: LEPROSY
     Dosage: 100 MILLIGRAM
     Route: 065
     Dates: start: 20200223
  8. THALIDOMIDE [Suspect]
     Active Substance: THALIDOMIDE
     Indication: TYPE 2 LEPRA REACTION
     Dosage: 200 MILLIGRAM
     Route: 048
     Dates: start: 20200115
  9. THALIDOMIDE [Suspect]
     Active Substance: THALIDOMIDE
     Dosage: 100 MILLIGRAM
     Route: 048
  10. COLCHICINE. [Concomitant]
     Active Substance: COLCHICINE
     Indication: TYPE 2 LEPRA REACTION
     Route: 065
  11. ANAKINRA [Concomitant]
     Active Substance: ANAKINRA
     Indication: TYPE 2 LEPRA REACTION
     Route: 065
  12. HYDROCORTISONE. [Concomitant]
     Active Substance: HYDROCORTISONE
     Indication: LEPROSY
     Dosage: 400 MILLIGRAM
     Route: 065
     Dates: start: 20200223, end: 20200304
  13. RIFAMPICIN [Concomitant]
     Active Substance: RIFAMPIN
     Indication: LEPROSY
     Dosage: 600 MILLIGRAM
     Route: 065
     Dates: start: 20200223
  14. MINOCYCLINE [Concomitant]
     Active Substance: MINOCYCLINE HYDROCHLORIDE
     Indication: LEPROSY
     Dosage: 100 MILLIGRAM
     Route: 065
     Dates: start: 20200304
  15. THALIDOMIDE [Suspect]
     Active Substance: THALIDOMIDE
     Route: 048
     Dates: end: 201905
  16. ETANERCEPT [Concomitant]
     Active Substance: ETANERCEPT
     Indication: TYPE 2 LEPRA REACTION
     Route: 065
  17. CLOFAZIMINE [Concomitant]
     Active Substance: CLOFAZIMINE
     Indication: TYPE 2 LEPRA REACTION
     Dosage: 100 MILLIGRAM
     Route: 065
  18. AZATHIOPRINE. [Concomitant]
     Active Substance: AZATHIOPRINE
     Indication: LEPROSY
  19. INFLIXIMAB [Concomitant]
     Active Substance: INFLIXIMAB
     Indication: TYPE 2 LEPRA REACTION
     Route: 065
  20. CLOFAZIMINE [Concomitant]
     Active Substance: CLOFAZIMINE
     Indication: LEPROSY
     Dosage: 300 MILLIGRAM
     Route: 065
     Dates: start: 20200223
  21. AZATHIOPRINE. [Concomitant]
     Active Substance: AZATHIOPRINE
     Indication: TYPE 2 LEPRA REACTION
     Dosage: 100 MILLIGRAM
     Route: 065
     Dates: start: 20200302
  22. DEXAMETHASONE. [Concomitant]
     Active Substance: DEXAMETHASONE
     Indication: LEPROSY
     Route: 065
     Dates: start: 20200304

REACTIONS (1)
  - Type 2 lepra reaction [Recovering/Resolving]

NARRATIVE: CASE EVENT DATE: 20200223
